FAERS Safety Report 17636296 (Version 2)
Quarter: 2020Q2

REPORT INFORMATION
  Report Type: Spontaneous
  Country: JP (occurrence: JP)
  Receive Date: 20200407
  Receipt Date: 20200410
  Transmission Date: 20200713
  Serious: Yes (Other)
  Sender: FDA-Public Use
  Company Number: NVSJ2020JP004028

PATIENT
  Age: 64 Year
  Sex: Female

DRUGS (7)
  1. DABRAFENIB [Suspect]
     Active Substance: DABRAFENIB
     Indication: MALIGNANT MELANOMA
     Dosage: 200 MG
     Route: 048
     Dates: start: 20170712, end: 20170713
  2. TRAMETINIB [Suspect]
     Active Substance: TRAMETINIB
     Indication: METASTATIC MALIGNANT MELANOMA
     Dosage: 2 MG
     Route: 048
     Dates: start: 201611
  3. DABRAFENIB [Suspect]
     Active Substance: DABRAFENIB
     Indication: BRAF GENE MUTATION
     Dosage: 150 MG
     Route: 048
  4. DABRAFENIB [Suspect]
     Active Substance: DABRAFENIB
     Indication: METASTATIC MALIGNANT MELANOMA
     Dosage: 300 MG
     Route: 048
     Dates: start: 201611
  5. TRAMETINIB [Suspect]
     Active Substance: TRAMETINIB
     Indication: BRAF GENE MUTATION
     Dosage: 1 MG
     Route: 048
  6. TRAMETINIB [Suspect]
     Active Substance: TRAMETINIB
     Indication: MALIGNANT MELANOMA
     Dosage: 1.5 MG
     Route: 048
     Dates: start: 20170712, end: 20170713
  7. FLUORESCEIN [Concomitant]
     Active Substance: FLUORESCEIN
     Indication: FUNDUS AUTOFLUORESCENCE
     Dosage: UNK
     Route: 065
     Dates: start: 20170306

REACTIONS (10)
  - Pigmentation disorder [Unknown]
  - Uveitis [Unknown]
  - Chorioretinal atrophy [Recovering/Resolving]
  - Serous retinal detachment [Recovering/Resolving]
  - Vitreous floaters [Unknown]
  - Optic disc disorder [Unknown]
  - Keratic precipitates [Unknown]
  - Vision blurred [Unknown]
  - Papilloedema [Unknown]
  - Visual acuity reduced [Unknown]
